FAERS Safety Report 18918593 (Version 2)
Quarter: 2021Q2

REPORT INFORMATION
  Report Type: Other
  Country: US (occurrence: US)
  Receive Date: 20210220
  Receipt Date: 20210407
  Transmission Date: 20210717
  Serious: Yes (Other)
  Sender: FDA-Public Use
  Company Number: US-ROCHE-2772616

PATIENT
  Sex: Female

DRUGS (2)
  1. ACTEMRA [Suspect]
     Active Substance: TOCILIZUMAB
     Indication: ESSENTIAL HYPERTENSION
     Dosage: PEN INJECTOR
     Route: 058
  2. ACTEMRA [Suspect]
     Active Substance: TOCILIZUMAB

REACTIONS (7)
  - Fall [Unknown]
  - Upper limb fracture [Unknown]
  - Intentional product use issue [Unknown]
  - Intervertebral disc compression [Unknown]
  - Speech disorder [Unknown]
  - Off label use [Unknown]
  - Spinal fracture [Unknown]
